APPROVED DRUG PRODUCT: ISOLYTE R IN DEXTROSE 5% IN PLASTIC CONTAINER
Active Ingredient: CALCIUM CHLORIDE; DEXTROSE; MAGNESIUM CHLORIDE; POTASSIUM CHLORIDE; SODIUM ACETATE; SODIUM CHLORIDE
Strength: 37MG/100ML;5GM/100ML;31MG/100ML;120MG/100ML;330MG/100ML;88MG/100ML
Dosage Form/Route: INJECTABLE;INJECTION
Application: N019864 | Product #001
Applicant: B BRAUN MEDICAL INC
Approved: Jun 10, 1993 | RLD: No | RS: No | Type: DISCN